FAERS Safety Report 9932205 (Version 1)
Quarter: 2014Q1

REPORT INFORMATION
  Report Type: Spontaneous
  Country: US (occurrence: None)
  Receive Date: 20140227
  Receipt Date: 20140227
  Transmission Date: 20141002
  Serious: Yes (Life-Threatening, Hospitalization, Disabling, Other)
  Sender: FDA-Public Use
  Company Number: None

PATIENT
  Age: 33 Year
  Sex: Female
  Weight: 116 kg

DRUGS (2)
  1. NUVARING [Suspect]
     Indication: CONTRACEPTION
     Dosage: 1 RING 3 WKS ON, 1 WK OFF, VAGINAL
     Route: 067
  2. ACCUTANE [Concomitant]

REACTIONS (3)
  - Cerebrovascular accident [None]
  - Cerebral artery occlusion [None]
  - Brain oedema [None]
